FAERS Safety Report 4416075-X (Version None)
Quarter: 2004Q3

REPORT INFORMATION
  Report Type: 
  Country: None (occurrence: None)
  Receive Date: 20040730
  Receipt Date: 20040719
  Transmission Date: 20050211
  Serious: Yes (Hospitalization, Other)
  Sender: FDA-Public Use
  Company Number: 2004037104

PATIENT
  Age: 86 Year
  Sex: Female
  Weight: 67.1324 kg

DRUGS (7)
  1. LIPITOR [Suspect]
     Indication: BLOOD CHOLESTEROL
     Dosage: 10 MG (10 MG, 1 IN 1 D), ORAL
     Route: 048
     Dates: start: 20030101
  2. DILTIAZEM HYDROCHLORIDE [Concomitant]
  3. WARFARIN (WARFARIN) [Concomitant]
  4. DIGOXIN [Concomitant]
  5. FUROSEMIDE [Concomitant]
  6. ACETYLSALICYLIC ACID SRT [Concomitant]
  7. NITROGLYCERIN [Concomitant]

REACTIONS (3)
  - INTESTINAL OPERATION [None]
  - LABORATORY TEST INTERFERENCE [None]
  - UNEVALUABLE EVENT [None]
